FAERS Safety Report 6955871-1 (Version None)
Quarter: 2010Q3

REPORT INFORMATION
  Report Type: 
  Country: None (occurrence: None)
  Receive Date: 20100830
  Receipt Date: 20100823
  Transmission Date: 20110219
  Serious: Yes (Death, Other)
  Sender: FDA-Public Use
  Company Number: GR-ROCHE-722893

PATIENT
  Age: 61 Year
  Sex: Female

DRUGS (3)
  1. GANCICLOVIR SODIUM [Suspect]
     Route: 042
  2. PREDNISOLONE [Suspect]
     Route: 065
  3. IMMUNE GLOBULIN IV NOS [Suspect]
     Route: 041

REACTIONS (3)
  - BACTERIAL SEPSIS [None]
  - DRUG INEFFECTIVE [None]
  - SERRATIA INFECTION [None]
